FAERS Safety Report 4655930-2 (Version None)
Quarter: 2005Q2

REPORT INFORMATION
  Report Type: 
  Country: None (occurrence: None)
  Receive Date: 20050506
  Receipt Date: 20050506
  Transmission Date: 20051028
  Serious: Yes (Other)
  Sender: FDA-Public Use
  Company Number: None

PATIENT
  Age: 38 Year
  Sex: Male
  Weight: 58.9676 kg

DRUGS (1)
  1. PAROXETINE   10 MG   GENERIC/WALGREENS [Suspect]
     Indication: ANXIETY
     Dosage: 10 MG   DAILY   ORAL
     Route: 048
     Dates: start: 20050426, end: 20050429

REACTIONS (4)
  - FEAR [None]
  - NERVOUSNESS [None]
  - PANIC ATTACK [None]
  - SELF-INJURIOUS IDEATION [None]
